FAERS Safety Report 12574569 (Version 3)
Quarter: 2016Q3

REPORT INFORMATION
  Report Type: Other
  Country: US (occurrence: US)
  Receive Date: 20160720
  Receipt Date: 20160824
  Transmission Date: 20161109
  Serious: Yes (Hospitalization, Other)
  Sender: FDA-Public Use
  Company Number: US-UNITED THERAPEUTICS-UNT-2016-011078

PATIENT
  Age: 57 Year
  Sex: Female
  Weight: 65.31 kg

DRUGS (3)
  1. REMODULIN [Suspect]
     Active Substance: TREPROSTINIL
     Indication: PULMONARY ARTERIAL HYPERTENSION
     Dosage: 0.12 ?G/KG, CONTINUING
     Route: 058
     Dates: start: 20140220
  2. OPSUMIT [Concomitant]
     Active Substance: MACITENTAN
     Indication: PRODUCT USED FOR UNKNOWN INDICATION
  3. ADEMPAS [Concomitant]
     Active Substance: RIOCIGUAT
     Indication: PRODUCT USED FOR UNKNOWN INDICATION

REACTIONS (14)
  - Syncope [Unknown]
  - Diarrhoea [Unknown]
  - Loss of consciousness [Unknown]
  - Urticaria [Unknown]
  - Pneumonia [Unknown]
  - Infusion site pain [Unknown]
  - Hypokalaemia [Unknown]
  - Administration site urticaria [Unknown]
  - Pyrexia [Not Recovered/Not Resolved]
  - Chills [Unknown]
  - Infusion site oedema [Unknown]
  - Lymphadenopathy [Unknown]
  - Muscle spasms [Unknown]
  - Dehydration [Unknown]

NARRATIVE: CASE EVENT DATE: 2016
